FAERS Safety Report 9379709 (Version 1)
Quarter: 2013Q3

REPORT INFORMATION
  Report Type: Spontaneous
  Country: DE (occurrence: DE)
  Receive Date: 20130702
  Receipt Date: 20130702
  Transmission Date: 20140515
  Serious: Yes (Other)
  Sender: FDA-Public Use
  Company Number: DE-ELI_LILLY_AND_COMPANY-DE201306007750

PATIENT
  Sex: Male

DRUGS (1)
  1. ZYPREXA [Suspect]
     Dosage: UNK

REACTIONS (11)
  - Arrhythmia [Unknown]
  - Convulsion [Unknown]
  - Palpitations [Unknown]
  - Poor peripheral circulation [Unknown]
  - Muscle twitching [Unknown]
  - Vision blurred [Unknown]
  - Metabolic disorder [Unknown]
  - Headache [Unknown]
  - Pain [Unknown]
  - Weight increased [Unknown]
  - Increased appetite [Unknown]
